FAERS Safety Report 5757312-9 (Version None)
Quarter: 2008Q2

REPORT INFORMATION
  Report Type: 
  Country: None (occurrence: None)
  Receive Date: 20080603
  Receipt Date: 20080522
  Transmission Date: 20081010
  Serious: Yes (Disabling)
  Sender: FDA-Public Use
  Company Number: US-ELI_LILLY_AND_COMPANY-US200805004937

PATIENT
  Sex: Female

DRUGS (5)
  1. FORTEO [Suspect]
     Indication: OSTEOPOROSIS
     Dates: start: 20080421
  2. FENTANYL-100 [Concomitant]
     Dosage: UNK, UNK
  3. ZOLOFT [Concomitant]
     Dosage: UNK, UNK
  4. DILANTIN [Concomitant]
  5. NAMENDA [Concomitant]

REACTIONS (6)
  - BALANCE DISORDER [None]
  - COORDINATION ABNORMAL [None]
  - DIZZINESS [None]
  - DYSARTHRIA [None]
  - GAIT DISTURBANCE [None]
  - VULVOVAGINAL MYCOTIC INFECTION [None]
